FAERS Safety Report 5672740-8 (Version None)
Quarter: 2008Q1

REPORT INFORMATION
  Report Type: 
  Country: None (occurrence: None)
  Receive Date: 20080306
  Receipt Date: 20080221
  Transmission Date: 20080703
  Serious: Yes (Other)
  Sender: FDA-Public Use
  Company Number: 070321-0000319

PATIENT

DRUGS (1)
  1. PANHEMATIN [Suspect]
     Indication: DRUG USE FOR UNKNOWN INDICATION
     Dosage: IV
     Route: 042

REACTIONS (3)
  - IRON OVERLOAD [None]
  - LIVER DISORDER [None]
  - SERUM FERRITIN INCREASED [None]
